FAERS Safety Report 24203434 (Version 1)
Quarter: 2024Q3

REPORT INFORMATION
  Report Type: Spontaneous
  Country: CA (occurrence: CA)
  Receive Date: 20240813
  Receipt Date: 20240813
  Transmission Date: 20241017
  Serious: Yes (Other)
  Sender: AUROBINDO
  Company Number: CA-AUROBINDO-AUR-APL-2024-039769

PATIENT
  Sex: Male

DRUGS (8)
  1. CIPROFLOXACIN [Suspect]
     Active Substance: CIPROFLOXACIN
     Indication: Hidradenitis
     Dosage: UNK
     Route: 065
  2. CIPROFLOXACIN [Suspect]
     Active Substance: CIPROFLOXACIN
     Indication: Crohn^s disease
  3. METRONIDAZOLE [Suspect]
     Active Substance: METRONIDAZOLE
     Indication: Crohn^s disease
     Dosage: UNK
     Route: 065
  4. METRONIDAZOLE [Suspect]
     Active Substance: METRONIDAZOLE
     Indication: Hidradenitis
  5. AZATHIOPRINE SODIUM [Suspect]
     Active Substance: AZATHIOPRINE SODIUM
     Indication: Hidradenitis
     Dosage: UNK
     Route: 065
  6. AZATHIOPRINE SODIUM [Suspect]
     Active Substance: AZATHIOPRINE SODIUM
     Indication: Crohn^s disease
  7. MESALAMINE [Suspect]
     Active Substance: MESALAMINE
     Indication: Hidradenitis
     Dosage: UNK
     Route: 065
  8. MESALAMINE [Suspect]
     Active Substance: MESALAMINE
     Indication: Crohn^s disease

REACTIONS (1)
  - Treatment failure [Unknown]
